FAERS Safety Report 10219827 (Version 1)
Quarter: 2014Q2

REPORT INFORMATION
  Report Type: Spontaneous
  Country: US (occurrence: US)
  Receive Date: 20140605
  Receipt Date: 20140605
  Transmission Date: 20141212
  Serious: No
  Sender: FDA-Public Use
  Company Number: US-PFIZER INC-2014155065

PATIENT
  Age: 89 Year
  Sex: Male
  Weight: 95.24 kg

DRUGS (2)
  1. LYRICA [Suspect]
     Indication: DIABETIC NEUROPATHY
     Dosage: ONE PILL IN MORNING AND TWO PILLS AT NIGHT
     Dates: start: 201405
  2. ALKERAN [Suspect]
     Indication: PLASMA CELL MYELOMA
     Dosage: 2 MG, TWO OF THOSE FOR FOUR DAYS EACH MONTH
     Dates: end: 2014

REACTIONS (2)
  - Vision blurred [Unknown]
  - Weight increased [Unknown]
